FAERS Safety Report 6752200-3 (Version None)
Quarter: 2010Q2

REPORT INFORMATION
  Report Type: 
  Country: None (occurrence: None)
  Receive Date: 20100601
  Receipt Date: 20100601
  Transmission Date: 20101027
  Serious: Yes (Other)
  Sender: FDA-Public Use
  Company Number: None

PATIENT
  Age: 61 Year
  Sex: Female

DRUGS (1)
  1. ESTRADIOL [Suspect]
     Indication: HORMONE REPLACEMENT THERAPY
     Dosage: .025 MG WEEKLY PATCH
     Dates: start: 20080101

REACTIONS (3)
  - APPLICATION SITE RASH [None]
  - DRUG INEFFECTIVE [None]
  - PRODUCT ADHESION ISSUE [None]
